FAERS Safety Report 10091748 (Version 1)
Quarter: 2014Q2

REPORT INFORMATION
  Report Type: Spontaneous
  Country: US (occurrence: US)
  Receive Date: 20140421
  Receipt Date: 20140421
  Transmission Date: 20141212
  Serious: No
  Sender: FDA-Public Use
  Company Number: US-PURDUE-USA-2003-0010016

PATIENT
  Sex: Male

DRUGS (4)
  1. OXYFAST CONCENTRATE 20 MG/ML [Suspect]
     Indication: CANCER PAIN
     Dosage: 80 MG, SINGLE
     Route: 042
  2. DILAUDID [Concomitant]
     Indication: CANCER PAIN
     Dosage: UNK UNK, UNK
     Route: 065
  3. METHADONE [Concomitant]
     Indication: CANCER PAIN
     Dosage: UNK UNK, UNK
     Route: 065
  4. UNKNOWN [Concomitant]

REACTIONS (1)
  - Incorrect route of drug administration [Recovered/Resolved]
